FAERS Safety Report 13386529 (Version 1)
Quarter: 2017Q1

REPORT INFORMATION
  Report Type: Report from Study
  Country: JP (occurrence: JP)
  Receive Date: 20170330
  Receipt Date: 20170330
  Transmission Date: 20170429
  Serious: Yes (Death, Hospitalization, Other)
  Sender: FDA-Public Use
  Company Number: JP-SHIRE-JP201706839AA

PATIENT
  Age: 87 Year
  Sex: Female

DRUGS (3)
  1. 422 (ANAGRELIDE) [Suspect]
     Active Substance: ANAGRELIDE
     Indication: ESSENTIAL THROMBOCYTHAEMIA
     Dosage: 3 MG/DAY
     Route: 048
     Dates: start: 20150722, end: 20160616
  2. 422 (ANAGRELIDE) [Suspect]
     Active Substance: ANAGRELIDE
     Dosage: 1 MG/DAY
     Route: 048
     Dates: start: 20150609, end: 20150707
  3. 422 (ANAGRELIDE) [Suspect]
     Active Substance: ANAGRELIDE
     Dosage: 2 MG/DAY
     Route: 048
     Dates: start: 20150708, end: 20150721

REACTIONS (2)
  - Gastric ulcer [Recovering/Resolving]
  - Cardiac failure [Fatal]

NARRATIVE: CASE EVENT DATE: 20160616
